FAERS Safety Report 17981390 (Version 1)
Quarter: 2020Q3

REPORT INFORMATION
  Report Type: Spontaneous
  Country: DK (occurrence: DK)
  Receive Date: 20200705
  Receipt Date: 20200705
  Transmission Date: 20201103
  Serious: Yes (Hospitalization)
  Sender: FDA-Public Use
  Company Number: DK-B.I. PHARMACEUTICALS,INC./RIDGEFIELD-2020-12-033033

PATIENT
  Age: 66 Year
  Sex: Male

DRUGS (2)
  1. TRAJENTA [Suspect]
     Active Substance: LINAGLIPTIN
     Indication: TYPE 2 DIABETES MELLITUS
     Dosage: STYRKE: 5 MG
     Route: 048
     Dates: start: 20190813, end: 20200606
  2. MITFORGEN [Suspect]
     Active Substance: METFORMIN HYDROCHLORIDE
     Indication: TYPE 2 DIABETES MELLITUS
     Dosage: STYRKE: 500 MG
     Route: 048
     Dates: start: 20190812

REACTIONS (2)
  - Euglycaemic diabetic ketoacidosis [Unknown]
  - Blood lactic acid increased [Unknown]

NARRATIVE: CASE EVENT DATE: 20200507
